FAERS Safety Report 22065129 (Version 1)
Quarter: 2023Q1

REPORT INFORMATION
  Report Type: Spontaneous
  Country: US (occurrence: US)
  Receive Date: 20230306
  Receipt Date: 20230306
  Transmission Date: 20230418
  Serious: No
  Sender: FDA-Public Use
  Company Number: US-PFIZER INC-202300086056

PATIENT
  Age: 47 Year
  Sex: Female

DRUGS (1)
  1. IBRANCE [Suspect]
     Active Substance: PALBOCICLIB
     Dosage: 125 MG, CYCLIC (DAILY FOR 21DAYS ON AND 7 DAYS OFF AND REPEAT)
     Dates: start: 20200529

REACTIONS (2)
  - White blood cell count decreased [Recovering/Resolving]
  - Influenza [Unknown]
